FAERS Safety Report 23593542 (Version 2)
Quarter: 2024Q2

REPORT INFORMATION
  Report Type: Spontaneous
  Country: JP (occurrence: JP)
  Receive Date: 20240304
  Receipt Date: 20240527
  Transmission Date: 20240715
  Serious: Yes (Hospitalization)
  Sender: FDA-Public Use
  Company Number: JP-GSKNCCC-Case-01924901_AE-80853

PATIENT

DRUGS (2)
  1. SERETIDE [Suspect]
     Active Substance: FLUTICASONE PROPIONATE\SALMETEROL XINAFOATE
     Indication: Asthma
     Dosage: 250 ?G, BID, 1 INHALATION PER DOSE
     Dates: start: 202312
  2. TULOBUTEROL [Concomitant]
     Active Substance: TULOBUTEROL
     Dosage: UNK

REACTIONS (3)
  - Influenza [Unknown]
  - Prescribed underdose [Unknown]
  - Off label use [Unknown]
